FAERS Safety Report 4752656-1 (Version None)
Quarter: 2005Q3

REPORT INFORMATION
  Report Type: 
  Country: None (occurrence: None)
  Receive Date: 20050824
  Receipt Date: 20050804
  Transmission Date: 20060218
  Serious: Yes (Other)
  Sender: FDA-Public Use
  Company Number: USA0508104954

PATIENT
  Age: 46 Year
  Sex: Female

DRUGS (5)
  1. CYMBALTA [Suspect]
     Indication: DEPRESSION
     Dosage: 90 MG AT BEDTIME
     Dates: start: 20050101, end: 20050701
  2. GABAPENTIN [Concomitant]
  3. DARVOCET [Concomitant]
  4. TRAZADONE (TRAZODONE) [Concomitant]
  5. DEXEDRINE [Concomitant]

REACTIONS (1)
  - CONVULSION [None]
